FAERS Safety Report 8767317 (Version 3)
Quarter: 2012Q4

REPORT INFORMATION
  Report Type: 
  Country: ES (occurrence: ES)
  Receive Date: 20120904
  Receipt Date: 20121106
  Transmission Date: 20130627
  Serious: Yes (Hospitalization)
  Sender: FDA-Public Use
  Company Number: ES-GLAXOSMITHKLINE-B0827325A

PATIENT
  Age: 26 Year
  Sex: Male

DRUGS (3)
  1. TROBALT [Suspect]
     Indication: EPILEPSY
     Route: 048
     Dates: start: 20120221
  2. ZEBINIX [Suspect]
     Indication: EPILEPSY
     Dosage: 1200MG Per day
     Route: 048
  3. VIMPAT [Concomitant]
     Indication: EPILEPSY
     Dosage: 400MG Per day
     Route: 048

REACTIONS (1)
  - Hodgkin^s disease [Not Recovered/Not Resolved]
